FAERS Safety Report 6129823-8 (Version None)
Quarter: 2009Q1

REPORT INFORMATION
  Report Type: 
  Country: None (occurrence: None)
  Receive Date: 20090324
  Receipt Date: 20090313
  Transmission Date: 20090719
  Serious: Yes (Hospitalization)
  Sender: FDA-Public Use
  Company Number: DE-JNJFOC-20090304050

PATIENT
  Age: 60 Year
  Sex: Female
  Weight: 70.2 kg

DRUGS (9)
  1. DOXORUBICIN HCL [Suspect]
     Indication: BREAST CANCER
     Dosage: 64 MG
     Route: 042
  2. CYCLOPHOSPHAMIDE [Suspect]
     Route: 042
  3. CYCLOPHOSPHAMIDE [Suspect]
     Indication: BREAST CANCER
     Dosage: 1098 MG
     Route: 042
  4. DEXAMETHASONE [Suspect]
     Indication: PREMEDICATION
     Route: 042
  5. HERCEPTIN [Suspect]
     Route: 042
  6. HERCEPTIN [Suspect]
     Indication: BREAST CANCER
     Dosage: 144 MG
     Route: 042
  7. FURESIS [Concomitant]
     Indication: DIURETIC THERAPY
     Route: 042
  8. MESNA [Concomitant]
     Route: 048
  9. METOCLOPRAMIDE [Concomitant]
     Indication: VOMITING
     Route: 048

REACTIONS (1)
  - ABDOMINAL PAIN [None]
